FAERS Safety Report 18975759 (Version 2)
Quarter: 2021Q1

REPORT INFORMATION
  Report Type: Spontaneous
  Country: FR (occurrence: FR)
  Receive Date: 20210305
  Receipt Date: 20210317
  Transmission Date: 20210420
  Serious: Yes (Other)
  Sender: FDA-Public Use
  Company Number: FR-BAUSCH-BL-2021-007005

PATIENT
  Age: 69 Year
  Sex: Female

DRUGS (13)
  1. METHYLPREDNISOLONE. [Concomitant]
     Active Substance: METHYLPREDNISOLONE
     Indication: VASCULITIS NECROTISING
  2. RITUXIMAB. [Suspect]
     Active Substance: RITUXIMAB
     Indication: VASCULITIS NECROTISING
     Dosage: SIX ROUNDS
     Route: 065
  3. TOCILIZUMAB. [Concomitant]
     Active Substance: TOCILIZUMAB
     Indication: VASCULITIS NECROTISING
  4. PREDNISONE. [Concomitant]
     Active Substance: PREDNISONE
     Indication: PRODUCT USED FOR UNKNOWN INDICATION
  5. CYCLOPHOSPHAMIDE. [Suspect]
     Active Substance: CYCLOPHOSPHAMIDE
     Indication: VASCULITIS NECROTISING
  6. AMOXICILLIN;CLAVULANIC ACID [Concomitant]
     Active Substance: AMOXICILLIN\CLAVULANIC ACID
     Indication: CHRONIC OBSTRUCTIVE PULMONARY DISEASE
  7. DEXAMETHASONE. [Suspect]
     Active Substance: DEXAMETHASONE
     Indication: CASTLEMAN^S DISEASE
     Route: 065
  8. DEXAMETHASONE. [Suspect]
     Active Substance: DEXAMETHASONE
     Indication: VASCULITIS NECROTISING
  9. TOCILIZUMAB. [Concomitant]
     Active Substance: TOCILIZUMAB
     Indication: CASTLEMAN^S DISEASE
  10. METHYLPREDNISOLONE. [Concomitant]
     Active Substance: METHYLPREDNISOLONE
     Indication: CASTLEMAN^S DISEASE
     Dosage: THREE BOLUSES
     Route: 040
  11. RITUXIMAB. [Suspect]
     Active Substance: RITUXIMAB
     Indication: CASTLEMAN^S DISEASE
     Dosage: ON DAY 1, DAY 7 AND THEN ONCE A MONTH (INFUSION,
     Route: 065
  12. DOXYCYCLINE. [Concomitant]
     Active Substance: DOXYCYCLINE
     Indication: PRODUCT USED FOR UNKNOWN INDICATION
  13. CYCLOPHOSPHAMIDE. [Suspect]
     Active Substance: CYCLOPHOSPHAMIDE
     Indication: CASTLEMAN^S DISEASE
     Dosage: SIX ROUNDS
     Route: 065

REACTIONS (2)
  - Acute pulmonary oedema [Unknown]
  - Hypoxia [Recovered/Resolved]
